FAERS Safety Report 13093346 (Version 1)
Quarter: 2017Q1

REPORT INFORMATION
  Report Type: Spontaneous
  Country: US (occurrence: US)
  Receive Date: 20170106
  Receipt Date: 20170106
  Transmission Date: 20170428
  Serious: Yes (Other)
  Sender: FDA-Public Use
  Company Number: 12927656-01-00

PATIENT
  Age: 43 Year
  Sex: Male
  Weight: 56.82 kg

DRUGS (1)
  1. ALACORT [Suspect]
     Active Substance: HYDROCORTISONE
     Indication: HAEMORRHOIDS
     Route: 061
     Dates: start: 20161027, end: 20161029

REACTIONS (3)
  - Dysphagia [Recovering/Resolving]
  - Dizziness [Recovering/Resolving]
  - Nervousness [Recovering/Resolving]

NARRATIVE: CASE EVENT DATE: 20161029
